FAERS Safety Report 20898467 (Version 1)
Quarter: 2022Q2

REPORT INFORMATION
  Report Type: Report from Study
  Country: US (occurrence: US)
  Receive Date: 20220601
  Receipt Date: 20220601
  Transmission Date: 20220720
  Serious: Yes (Hospitalization, Other)
  Sender: FDA-Public Use
  Company Number: US-ABBVIE-22K-163-4416241-00

PATIENT
  Sex: Female

DRUGS (2)
  1. VENCLEXTA [Suspect]
     Active Substance: VENETOCLAX
     Indication: Product used for unknown indication
     Route: 048
  2. VFEND [Suspect]
     Active Substance: VORICONAZOLE
     Indication: Product used for unknown indication
     Route: 065

REACTIONS (8)
  - Hospice care [Unknown]
  - Myocardial injury [Unknown]
  - Neoplasm malignant [Unknown]
  - Leukaemia [Unknown]
  - Fungal infection [Unknown]
  - Gait inability [Unknown]
  - Hypophagia [Unknown]
  - Pain [Unknown]
